FAERS Safety Report 6719307-8 (Version None)
Quarter: 2010Q2

REPORT INFORMATION
  Report Type: 
  Country: None (occurrence: None)
  Receive Date: 20100511
  Receipt Date: 20100426
  Transmission Date: 20101027
  Serious: Yes (Other)
  Sender: FDA-Public Use
  Company Number: PHHY2010US27262

PATIENT
  Sex: Female

DRUGS (2)
  1. FEMARA [Suspect]
     Dosage: 2.5 MG DAILY
     Route: 048
     Dates: start: 20100413
  2. RADIATION THERAPY [Concomitant]

REACTIONS (2)
  - FATIGUE [None]
  - SURGERY [None]
